FAERS Safety Report 11877012 (Version 1)
Quarter: 2015Q4

REPORT INFORMATION
  Report Type: Spontaneous
  Country: SI (occurrence: SI)
  Receive Date: 20151229
  Receipt Date: 20151229
  Transmission Date: 20160305
  Serious: Yes (Other)
  Sender: FDA-Public Use
  Company Number: SI-GLAXOSMITHKLINE-SI2015GSK181737

PATIENT
  Age: 76 Year
  Sex: Male

DRUGS (1)
  1. AVODART [Suspect]
     Active Substance: DUTASTERIDE
     Indication: BENIGN PROSTATIC HYPERPLASIA
     Dosage: UNK
     Route: 048
     Dates: start: 20151211, end: 20151214

REACTIONS (2)
  - Scrotal pain [Recovered/Resolved]
  - Breast discharge [Recovered/Resolved]

NARRATIVE: CASE EVENT DATE: 20151214
